FAERS Safety Report 7577500-9 (Version None)
Quarter: 2011Q2

REPORT INFORMATION
  Report Type: 
  Country: None (occurrence: None)
  Receive Date: 20110628
  Receipt Date: 20110624
  Transmission Date: 20111010
  Serious: Yes (Hospitalization)
  Sender: FDA-Public Use
  Company Number: US-BRISTOL-MYERS SQUIBB COMPANY-15405079

PATIENT
  Age: 75 Year
  Sex: Female

DRUGS (22)
  1. VERSED [Concomitant]
  2. FENTANYL [Concomitant]
  3. LASIX [Concomitant]
     Indication: OEDEMA
     Dosage: FREQUENCY:MWF
     Route: 048
     Dates: start: 20100401
  4. NEXIUM [Concomitant]
     Indication: GASTROOESOPHAGEAL REFLUX DISEASE
     Route: 048
     Dates: start: 20091201
  5. NEXIUM [Concomitant]
     Indication: PROPHYLAXIS
     Route: 048
     Dates: start: 20091201
  6. TRIAMCINOLONE [Concomitant]
     Indication: PRURITUS
     Dosage: OINTMENT
     Route: 061
     Dates: start: 20101013
  7. K-DUR [Concomitant]
  8. HYDROCORTISONE [Concomitant]
     Indication: SEBORRHOEA
     Route: 061
     Dates: start: 20100923
  9. KLOR-CON [Concomitant]
     Indication: HYPOKALAEMIA
     Dosage: FREQUENCY:MWF
     Route: 048
     Dates: start: 20100401
  10. EYE DROPS [Concomitant]
     Indication: HYPERSENSITIVITY
     Dates: start: 20101005
  11. BACTRIM DS [Concomitant]
     Dosage: 1 DF:800/160MG  BID FOR 5 DAYS
     Route: 048
     Dates: start: 20101124, end: 20101128
  12. DIOVAN [Concomitant]
     Indication: HYPERTENSION
     Route: 048
     Dates: start: 20100401
  13. ZOLOFT [Concomitant]
     Indication: DEPRESSION
     Route: 048
     Dates: start: 20000101
  14. LOVAZA [Concomitant]
     Indication: MEDICAL DIET
     Route: 048
     Dates: start: 20030101
  15. MULTAQ [Concomitant]
     Indication: ATRIAL FIBRILLATION
     Route: 048
     Dates: start: 20100401
  16. NAPROXEN (ALEVE) [Concomitant]
     Indication: ARTHRITIS
     Dosage: 1DF=2 TABS
     Route: 048
     Dates: start: 20050101
  17. ZYRTEC [Concomitant]
     Indication: HYPERSENSITIVITY
     Route: 048
     Dates: start: 20000101
  18. BISACODYL [Concomitant]
     Indication: CONSTIPATION
     Route: 048
     Dates: start: 20020101
  19. PREDNISONE [Concomitant]
     Dosage: 26OCT10-27OCT10,60MG 09NOV10-15NOV10,70MG/DAY,DECRESE 10MG EVERY DAY
     Route: 048
     Dates: start: 20101026, end: 20101115
  20. IPILIMUMAB [Suspect]
     Indication: METASTATIC MALIGNANT MELANOMA
     Dosage: INTERRUPTED ON 03NOV2010
     Route: 042
     Dates: start: 20100924, end: 20101103
  21. BENADRYL [Concomitant]
     Indication: HYPERSENSITIVITY
     Route: 048
     Dates: start: 20101008
  22. DEXLANSOPRAZOLE [Concomitant]
     Route: 048
     Dates: start: 20101013

REACTIONS (1)
  - COLITIS [None]
